FAERS Safety Report 11434418 (Version 1)
Quarter: 2015Q3

REPORT INFORMATION
  Report Type: Spontaneous
  Country: US (occurrence: None)
  Receive Date: 20150828
  Receipt Date: 20150828
  Transmission Date: 20151125
  Serious: Yes (Other)
  Sender: FDA-Public Use
  Company Number: None

PATIENT
  Age: 11 Year
  Sex: Female
  Weight: 31.75 kg

DRUGS (1)
  1. FOCALIN XR [Suspect]
     Active Substance: DEXMETHYLPHENIDATE HYDROCHLORIDE
     Indication: ATTENTION DEFICIT/HYPERACTIVITY DISORDER
     Dosage: 40MG?812HRS?ORAL
     Route: 048
     Dates: start: 20141111

REACTIONS (5)
  - Drug effect variable [None]
  - Drug effect decreased [None]
  - Mood altered [None]
  - Product substitution issue [None]
  - Affect lability [None]

NARRATIVE: CASE EVENT DATE: 20141111
